FAERS Safety Report 17663859 (Version 2)
Quarter: 2020Q2

REPORT INFORMATION
  Report Type: Spontaneous
  Country: US (occurrence: US)
  Receive Date: 20200414
  Receipt Date: 20200420
  Transmission Date: 20200713
  Serious: Yes (Other)
  Sender: FDA-Public Use
  Company Number: US-HBP-2020US020435

PATIENT
  Sex: Male

DRUGS (7)
  1. VIAGRA [Concomitant]
     Active Substance: SILDENAFIL CITRATE
  2. LEVOTHYROXINE. [Concomitant]
     Active Substance: LEVOTHYROXINE
  3. VALERIAN ROOT                      /01561601/ [Concomitant]
     Active Substance: VALERIAN
  4. L-ARGININE                         /00126101/ [Concomitant]
     Active Substance: ARGININE
  5. LIPITOR [Concomitant]
     Active Substance: ATORVASTATIN CALCIUM
  6. VALCHLOR [Suspect]
     Active Substance: MECHLORETHAMINE
     Indication: CUTANEOUS T-CELL LYMPHOMA
     Dosage: UNK, QD
     Route: 061
     Dates: start: 20140730
  7. NIASPAN ER [Concomitant]
     Active Substance: NIACIN

REACTIONS (2)
  - Bladder neoplasm [Recovered/Resolved]
  - Bladder neoplasm surgery [Recovered/Resolved]

NARRATIVE: CASE EVENT DATE: 2020
